FAERS Safety Report 9691181 (Version 1)
Quarter: 2013Q4

REPORT INFORMATION
  Report Type: Spontaneous
  Country: GB (occurrence: GB)
  Receive Date: 20131115
  Receipt Date: 20131115
  Transmission Date: 20140711
  Serious: Yes (Other)
  Sender: FDA-Public Use
  Company Number: GB-SA-2013SA114973

PATIENT
  Age: 85 Year
  Sex: Female

DRUGS (9)
  1. DRONEDARONE [Suspect]
     Indication: ATRIAL FIBRILLATION
     Route: 048
     Dates: start: 2012, end: 20130810
  2. ADCAL-D3 [Concomitant]
  3. WARFARIN [Concomitant]
  4. EPROSARTAN [Concomitant]
  5. ASPIRIN [Concomitant]
  6. OMEPRAZOLE [Concomitant]
  7. ATORVASTATIN [Concomitant]
  8. AMLODIPINE [Concomitant]
  9. CO-AMILOFRUSE [Concomitant]

REACTIONS (6)
  - Atrioventricular block complete [Recovered/Resolved]
  - Bradycardia [Unknown]
  - Atrioventricular dissociation [Unknown]
  - Dyspnoea [Unknown]
  - Fall [Unknown]
  - Heart rate decreased [Unknown]
